FAERS Safety Report 17121212 (Version 1)
Quarter: 2019Q4

REPORT INFORMATION
  Report Type: Spontaneous
  Country: DK (occurrence: DK)
  Receive Date: 20191206
  Receipt Date: 20191206
  Transmission Date: 20200122
  Serious: Yes (Hospitalization, Other)
  Sender: FDA-Public Use
  Company Number: DK-ROCHE-2484542

PATIENT
  Age: 52 Year
  Sex: Female

DRUGS (1)
  1. OCREVUS [Suspect]
     Active Substance: OCRELIZUMAB
     Indication: RELAPSING-REMITTING MULTIPLE SCLEROSIS
     Route: 042
     Dates: start: 20181107, end: 201910

REACTIONS (8)
  - Abdominal pain upper [Unknown]
  - Hypersomnia [Unknown]
  - Pruritus [Unknown]
  - Erythema [Unknown]
  - Rash [Unknown]
  - C-reactive protein increased [Unknown]
  - Amylase increased [Unknown]
  - B-lymphocyte count decreased [Recovering/Resolving]

NARRATIVE: CASE EVENT DATE: 20181107
